FAERS Safety Report 17778720 (Version 3)
Quarter: 2020Q2

REPORT INFORMATION
  Report Type: Spontaneous
  Country: US (occurrence: US)
  Receive Date: 20200514
  Receipt Date: 20200515
  Transmission Date: 20200714
  Serious: No
  Sender: FDA-Public Use
  Company Number: US-JNJFOC-20200335469

PATIENT
  Sex: Female
  Weight: 103.06 kg

DRUGS (1)
  1. IMODIUM A-D [Suspect]
     Active Substance: LOPERAMIDE HYDROCHLORIDE
     Indication: DIARRHOEA
     Dosage: DAILY?2 TABLETS ONCE A DAY
     Route: 048
     Dates: start: 20000101

REACTIONS (4)
  - Drug ineffective [Unknown]
  - Product use complaint [Unknown]
  - Product dose omission [Unknown]
  - Product packaging issue [Unknown]
